FAERS Safety Report 10654568 (Version 2)
Quarter: 2015Q1

REPORT INFORMATION
  Report Type: Spontaneous
  Country: IT (occurrence: None)
  Receive Date: 20141212
  Receipt Date: 20150109
  Transmission Date: 20150720
  Serious: Yes (Hospitalization)
  Sender: FDA-Public Use
  Company Number: 2657893

PATIENT
  Age: 62 Year
  Sex: Female

DRUGS (8)
  1. KCL [Concomitant]
     Active Substance: POTASSIUM CHLORIDE
  2. ZOMETA [Concomitant]
     Active Substance: ZOLEDRONIC ACID
  3. CARBOPLATIN. [Suspect]
     Active Substance: CARBOPLATIN
     Indication: SQUAMOUS ENDOMETRIAL CARCINOMA
     Dosage: CYCLICAL, NOT OTHERWISE SPECIFIED
     Route: 042
     Dates: start: 20140912, end: 20141115
  4. SODIUM BICARBONATE. [Concomitant]
     Active Substance: SODIUM BICARBONATE
  5. PACLITAXEL. [Concomitant]
     Active Substance: PACLITAXEL
  6. MAG 2 [Concomitant]
     Active Substance: MAGNESIUM CHLORIDE
  7. CALCIUM SANDOZ [Concomitant]
     Active Substance: CALCIUM
  8. MAG 2 [Concomitant]
     Active Substance: MAGNESIUM CHLORIDE

REACTIONS (3)
  - Hypokalaemia [None]
  - Asthenia [None]
  - Quadriparesis [None]

NARRATIVE: CASE EVENT DATE: 20141009
